FAERS Safety Report 16197522 (Version 1)
Quarter: 2019Q2

REPORT INFORMATION
  Report Type: Spontaneous
  Country: BH (occurrence: BH)
  Receive Date: 20190415
  Receipt Date: 20190415
  Transmission Date: 20190711
  Serious: Yes (Hospitalization, Other)
  Sender: FDA-Public Use
  Company Number: BH-GLAXOSMITHKLINE-BH2019GSK061603

PATIENT
  Age: 18 Year
  Sex: Female

DRUGS (7)
  1. BUPROPION. [Suspect]
     Active Substance: BUPROPION
     Indication: APATHY
     Dosage: 150 MG, QD
  2. FLUOXETINE [Suspect]
     Active Substance: FLUOXETINE HYDROCHLORIDE
     Indication: MISOPHONIA
     Dosage: 20 MG, QD
     Dates: start: 201710
  3. MIRTAZAPINE. [Suspect]
     Active Substance: MIRTAZAPINE
     Indication: DEPRESSION
  4. ESCITALOPRAM [Suspect]
     Active Substance: ESCITALOPRAM OXALATE
     Indication: MISOPHONIA
  5. FLUOXETINE [Suspect]
     Active Substance: FLUOXETINE HYDROCHLORIDE
     Indication: DEPRESSION
     Dosage: 40 MG, QD
  6. ESCITALOPRAM [Suspect]
     Active Substance: ESCITALOPRAM OXALATE
     Indication: DEPRESSION
     Dosage: 20 MG, UNK
  7. MIRTAZAPINE. [Suspect]
     Active Substance: MIRTAZAPINE
     Indication: MISOPHONIA
     Dosage: 15 MG, UNK

REACTIONS (6)
  - Suicide attempt [Recovered/Resolved]
  - Bulimia nervosa [Unknown]
  - Intentional product misuse [Unknown]
  - Weight increased [Unknown]
  - Drug intolerance [Unknown]
  - Intentional overdose [Unknown]

NARRATIVE: CASE EVENT DATE: 201712
